FAERS Safety Report 18439571 (Version 5)
Quarter: 2021Q2

REPORT INFORMATION
  Report Type: Spontaneous
  Country: JP (occurrence: JP)
  Receive Date: 20201029
  Receipt Date: 20210407
  Transmission Date: 20210717
  Serious: Yes (Hospitalization, Other)
  Sender: FDA-Public Use
  Company Number: JP-AMGEN-JPNSP2020174340

PATIENT
  Age: 95 Year
  Sex: Female

DRUGS (23)
  1. DIART [Suspect]
     Active Substance: AZOSEMIDE
     Indication: PRODUCT USED FOR UNKNOWN INDICATION
     Dosage: 60 MILLIGRAM, QD, AFTER BREAKFAST
     Route: 048
  2. TRICHLORMETHIAZIDE [Suspect]
     Active Substance: TRICHLORMETHIAZIDE
     Indication: PRODUCT USED FOR UNKNOWN INDICATION
     Dosage: 2 MILLIGRAM, QD, AFTER BREAKFAST
     Route: 048
  3. ADALAT [Concomitant]
     Active Substance: NIFEDIPINE
     Dosage: 40 MILLIGRAM, QD, AFTER BREAKFAST
     Route: 048
  4. NESP [Suspect]
     Active Substance: DARBEPOETIN ALFA
     Dosage: 240 MICROGRAM
     Route: 058
     Dates: start: 20210108
  5. LANSOPRAZOLE. [Concomitant]
     Active Substance: LANSOPRAZOLE
     Dosage: 15 MILLIGRAM, QD, AFTER DINNER
     Route: 048
  6. LOXOPROFEN NA [Concomitant]
     Active Substance: LOXOPROFEN SODIUM
     Dosage: 100 MILLIGRAM, PRN
  7. CELIPROLOL [CELIPROLOL HYDROCHLORIDE] [Concomitant]
     Dosage: 100 MILLIGRAM, QD, AFTER DINNER
     Route: 048
  8. TOUGHMAC E [Concomitant]
     Active Substance: UNSPECIFIED INGREDIENT
     Dosage: 1 DOSAGE FORM, BID, AFTER BREAKFAST AND DINNER
     Route: 048
  9. NESP [Suspect]
     Active Substance: DARBEPOETIN ALFA
     Indication: MYELODYSPLASTIC SYNDROME
     Dosage: 240 MICROGRAM, Q2WK
     Route: 058
     Dates: start: 20191001, end: 20200317
  10. NESP [Suspect]
     Active Substance: DARBEPOETIN ALFA
     Dosage: 240 MICROGRAM, QWK
     Route: 058
     Dates: start: 20200327, end: 20200717
  11. DIART [Suspect]
     Active Substance: AZOSEMIDE
     Dosage: 30 MILLIGRAM, QD, AFTER BREAKFAST
     Route: 048
  12. CARBOCISTEINE [Concomitant]
     Active Substance: CARBOCYSTEINE
     Dosage: 500 MILLIGRAM, TID, AFTER BREAKFAST, LUNCH AND DINNER
     Route: 048
  13. ITOPRIDE HYDROCHLORIDE [Concomitant]
     Active Substance: ITOPRIDE HYDROCHLORIDE
     Dosage: 50 MILLIGRAM, QD, AFTER DINNER
     Route: 048
  14. NESP [Suspect]
     Active Substance: DARBEPOETIN ALFA
     Dosage: 240 MICROGRAM, Q2WK
     Route: 058
     Dates: start: 20200807, end: 20201016
  15. ADALAT [Concomitant]
     Active Substance: NIFEDIPINE
     Dosage: 20 MILLIGRAM, QD, AFTER BREAKFAST
     Route: 048
  16. MEDICON [DEXTROMETHORPHAN HYDROBROMIDE] [Concomitant]
     Active Substance: DEXTROMETHORPHAN HYDROBROMIDE
     Dosage: 15 MILLIGRAM, TID, AFTER BREAKFAST, LUNCH AND DINNER
     Route: 048
  17. CEFMETAZOLE SODIUM [Concomitant]
     Active Substance: CEFMETAZOLE SODIUM
     Indication: COLITIS ISCHAEMIC
     Dosage: 1 GRAM, BID
     Route: 041
     Dates: start: 20191115, end: 20191121
  18. IMIDAPRIL HYDROCHLORIDE [Concomitant]
     Active Substance: IMIDAPRIL HYDROCHLORIDE
     Dosage: 5 MILLIGRAM, QD, AFTER BREAKFAST
     Route: 048
  19. EBRANTIL [URAPIDIL] [Concomitant]
     Active Substance: URAPIDIL
     Dosage: 15 MILLIGRAM, BID, AFTER BREAKFAST AND DINNER
     Route: 048
  20. NESP [Suspect]
     Active Substance: DARBEPOETIN ALFA
     Dosage: 240 MICROGRAM, Q2WK
     Route: 058
     Dates: start: 20201106, end: 20201218
  21. ALFAROL [Concomitant]
     Active Substance: ALFACALCIDOL
     Dosage: 0.5 MICROGRAM, QD, AFTER BREAKFAST
     Route: 048
  22. GLAKAY [Concomitant]
     Active Substance: MENATETRENONE
     Dosage: 15 MILLIGRAM, TID, AFTER BREAKFAST, LUNCH AND DINNER
     Route: 048
  23. FEBURIC [Concomitant]
     Active Substance: FEBUXOSTAT
     Dosage: 10 MILLIGRAM, QD, AFTER BREAKFAST
     Route: 048

REACTIONS (3)
  - Off label use [Unknown]
  - Colitis ischaemic [Recovered/Resolved]
  - Pneumonia [Recovered/Resolved]

NARRATIVE: CASE EVENT DATE: 20191114
